FAERS Safety Report 14094839 (Version 6)
Quarter: 2019Q2

REPORT INFORMATION
  Report Type: Spontaneous
  Country: US (occurrence: US)
  Receive Date: 20171016
  Receipt Date: 20190513
  Transmission Date: 20190711
  Serious: Yes (Hospitalization, Other)
  Sender: FDA-Public Use
  Company Number: US-SA-2017SA198216

PATIENT
  Age: 88 Year
  Sex: Female
  Weight: 86 kg

DRUGS (2)
  1. PLAVIX [Suspect]
     Active Substance: CLOPIDOGREL BISULFATE
     Indication: CEREBROVASCULAR ACCIDENT PROPHYLAXIS
     Dosage: 75 MG,QD
     Route: 048
     Dates: start: 20060615
  2. METFORMIN HYDROCHLORIDE. [Suspect]
     Active Substance: METFORMIN HYDROCHLORIDE
     Dosage: 50 MG,QD
     Route: 048

REACTIONS (13)
  - Transient ischaemic attack [Recovered/Resolved with Sequelae]
  - Brain neoplasm [Unknown]
  - Pelvic deformity [Unknown]
  - Blood pressure abnormal [Unknown]
  - Anxiety [Unknown]
  - Speech disorder [Unknown]
  - Fumbling [Unknown]
  - Bronchitis [Unknown]
  - Feeling abnormal [Recovering/Resolving]
  - Malaise [Unknown]
  - Cerebrovascular accident [Recovered/Resolved with Sequelae]
  - Insomnia [Unknown]
  - Hypoaesthesia [Unknown]

NARRATIVE: CASE EVENT DATE: 20060615
